FAERS Safety Report 5600277-0 (Version None)
Quarter: 2008Q1

REPORT INFORMATION
  Report Type: 
  Country: None (occurrence: None)
  Receive Date: 20080123
  Receipt Date: 20080109
  Transmission Date: 20080703
  Serious: Yes (Hospitalization)
  Sender: FDA-Public Use
  Company Number: US-JNJFOC-20080102264

PATIENT
  Age: 67 Year
  Sex: Female

DRUGS (20)
  1. IMODIUM A-D [Suspect]
  2. IMODIUM A-D [Suspect]
     Indication: DIARRHOEA
  3. LORTAB [Suspect]
     Indication: DRUG USE FOR UNKNOWN INDICATION
  4. CLONAZEPAM [Suspect]
     Indication: DEPRESSION
  5. CLONAZEPAM [Suspect]
     Indication: ANXIETY
  6. SKELAXIN [Suspect]
     Indication: MUSCLE RELAXANT THERAPY
  7. FLAGYL [Suspect]
     Indication: DIVERTICULITIS
  8. PHENERGAN HCL [Suspect]
     Indication: NAUSEA
  9. OXYCONTIN [Suspect]
     Indication: PAIN
  10. STUDY DRUG [Concomitant]
     Route: 048
  11. STUDY DRUG [Concomitant]
     Indication: IDIOPATHIC PULMONARY FIBROSIS
     Route: 048
  12. ACETAMINOPHEN [Concomitant]
     Indication: DRUG USE FOR UNKNOWN INDICATION
  13. PROZAC [Concomitant]
  14. SYNTHROID [Concomitant]
  15. ATENOLOL [Concomitant]
  16. SINGULAIR [Concomitant]
  17. RHINOCORT [Concomitant]
  18. NEXIUM [Concomitant]
  19. LASIX [Concomitant]
  20. BENICAR [Concomitant]

REACTIONS (2)
  - FALL [None]
  - SPINAL COMPRESSION FRACTURE [None]
